FAERS Safety Report 6674557-4 (Version None)
Quarter: 2010Q2

REPORT INFORMATION
  Report Type: 
  Country: None (occurrence: None)
  Receive Date: 20100409
  Receipt Date: 20100324
  Transmission Date: 20101027
  Serious: Yes (Other)
  Sender: FDA-Public Use
  Company Number: TN-BAYER-201018167GPV

PATIENT
  Age: 13 Year
  Sex: Female

DRUGS (9)
  1. GARDENAL [Suspect]
     Indication: EPILEPSY
     Route: 065
     Dates: start: 20050101, end: 20050101
  2. ADALAT [Suspect]
     Indication: HYPERTENSION
     Route: 065
     Dates: start: 20040101, end: 20040101
  3. ADALAT [Suspect]
     Dates: start: 20050101, end: 20050101
  4. FAMODINE [Suspect]
     Indication: GASTRITIS
     Dates: start: 20050101, end: 20050101
  5. SECTRAL [Concomitant]
     Indication: HYPERTENSION
     Dates: start: 20050101
  6. AMITRIPTYLINE HCL [Concomitant]
     Indication: IRRITABILITY
     Dates: start: 20050101
  7. AMOXICILLIN TRIHYDRATE [Concomitant]
     Indication: GASTRITIS
  8. FUNGIZONE [Concomitant]
     Indication: GASTRITIS
  9. OMEPRAZOLE [Concomitant]
     Indication: GASTRITIS

REACTIONS (9)
  - CACHEXIA [None]
  - CHEST EXPANSION DECREASED [None]
  - DIPLEGIA [None]
  - DYSPHAGIA [None]
  - DYSPHONIA [None]
  - MOTOR DYSFUNCTION [None]
  - MUSCLE ATROPHY [None]
  - PERIPHERAL MOTOR NEUROPATHY [None]
  - QUADRIPLEGIA [None]
